FAERS Safety Report 6006070-1 (Version None)
Quarter: 2008Q4

REPORT INFORMATION
  Report Type: 
  Country: None (occurrence: None)
  Receive Date: 20081217
  Receipt Date: 20081204
  Transmission Date: 20090506
  Serious: Yes (Hospitalization, Other)
  Sender: FDA-Public Use
  Company Number: US-ELI_LILLY_AND_COMPANY-US200812001784

PATIENT
  Sex: Male

DRUGS (7)
  1. BYETTA [Suspect]
     Dosage: 5 UG, 2/D
     Route: 058
     Dates: start: 20080716, end: 20080901
  2. NOVOLOG MIX 70/30 [Concomitant]
     Dosage: 60 U, EACH MORNING
     Route: 058
  3. NOVOLOG MIX 70/30 [Concomitant]
     Dosage: 45 U, EACH MORNING
     Route: 058
  4. METFORMIN HCL [Concomitant]
     Dosage: 1000 MG, 2/D
     Route: 048
  5. RHINOCORT [Concomitant]
     Dosage: 32 UG, DAILY (1/D)
     Route: 045
  6. DICLOFENAC SODIUM [Concomitant]
     Dosage: 75 MG, 2/D
     Route: 048
  7. LISINOPRIL [Concomitant]
     Dosage: 5 MG, EACH EVENING
     Route: 048
     Dates: end: 20080901

REACTIONS (1)
  - PANCREATITIS [None]
